FAERS Safety Report 16070662 (Version 1)
Quarter: 2019Q1

REPORT INFORMATION
  Report Type: Spontaneous
  Country: GB (occurrence: GB)
  Receive Date: 20190314
  Receipt Date: 20190314
  Transmission Date: 20190418
  Serious: Yes (Other)
  Sender: FDA-Public Use
  Company Number: GB-TEVA-2019-GB-1021416

PATIENT
  Age: 84 Year
  Sex: Female

DRUGS (7)
  1. CALCIUM AND COLECALCIFEROL [Concomitant]
     Dosage: 400 UNIT/ 1.25MG
  2. ATORVASTATIN [Concomitant]
     Active Substance: ATORVASTATIN
     Dosage: 80 MILLIGRAM DAILY; DISCONTINUED IN CLARITHROMYCIN COURSE
  3. CLARITHROMYCIN. [Suspect]
     Active Substance: CLARITHROMYCIN
     Indication: INFECTED CYST
     Dosage: 2 DOSAGE FORMS DAILY; MORNING AND EVENING.
     Route: 048
     Dates: start: 20190130, end: 20190206
  4. METFORMIN [Concomitant]
     Active Substance: METFORMIN HYDROCHLORIDE
     Indication: DIABETES MELLITUS
  5. TRAVOPROST. [Concomitant]
     Active Substance: TRAVOPROST
     Dosage: 1 GTT DAILY; NIGHT
     Route: 047
  6. ACETYLSALICYLIC ACID [Concomitant]
     Active Substance: ASPIRIN
     Dosage: 75 MILLIGRAM DAILY; WITH FOOD
  7. GLICLAZIDE [Concomitant]
     Active Substance: GLICLAZIDE
     Dosage: 120 MILLIGRAM DAILY; 40MG AT NIGHT AND 80MG IN THE MORNING.

REACTIONS (5)
  - Urinary tract disorder [Unknown]
  - Haemorrhagic cyst [Unknown]
  - Dysgeusia [Recovering/Resolving]
  - Cyst rupture [Unknown]
  - Oral pain [Recovered/Resolved with Sequelae]

NARRATIVE: CASE EVENT DATE: 20190131
